FAERS Safety Report 4459685-6 (Version None)
Quarter: 2004Q3

REPORT INFORMATION
  Report Type: 
  Country: None (occurrence: None)
  Receive Date: 20040923
  Receipt Date: 20040923
  Transmission Date: 20050211
  Serious: No
  Sender: FDA-Public Use
  Company Number: None

PATIENT
  Age: 83 Year
  Weight: 71 kg

DRUGS (4)
  1. NESIRITIDE 1.5MG/250ML [Suspect]
     Indication: CARDIAC FAILURE CONGESTIVE
     Dosage: 0.01MCG/KG/M    INTRAVENOUS
     Route: 042
     Dates: start: 20040119, end: 20040119
  2. LASIX [Concomitant]
  3. SOLU-MEDROL [Concomitant]
  4. LEVAQUIN [Concomitant]

REACTIONS (2)
  - HYPOTENSION [None]
  - INFUSION RELATED REACTION [None]
